FAERS Safety Report 10908404 (Version 3)
Quarter: 2015Q2

REPORT INFORMATION
  Report Type: Spontaneous
  Country: JP (occurrence: JP)
  Receive Date: 20150312
  Receipt Date: 20150625
  Transmission Date: 20150821
  Serious: Yes (Hospitalization)
  Sender: FDA-Public Use
  Company Number: JP-SA-2015SA028631

PATIENT
  Age: 10 Year
  Sex: Male
  Weight: 17 kg

DRUGS (4)
  1. SPIRONOLACTONE. [Suspect]
     Active Substance: SPIRONOLACTONE
     Indication: CHRONIC KIDNEY DISEASE
     Route: 065
  2. SPIRONOLACTONE. [Suspect]
     Active Substance: SPIRONOLACTONE
     Indication: CHRONIC KIDNEY DISEASE
     Route: 065
  3. FUROSEMIDE. [Suspect]
     Active Substance: FUROSEMIDE
     Indication: CHRONIC KIDNEY DISEASE
     Route: 065
  4. FUROSEMIDE. [Suspect]
     Active Substance: FUROSEMIDE
     Indication: CHRONIC KIDNEY DISEASE
     Route: 065

REACTIONS (13)
  - Blood creatinine increased [Recovering/Resolving]
  - Cardiothoracic ratio increased [Recovering/Resolving]
  - Pleural effusion [Recovering/Resolving]
  - Blood urea increased [Recovering/Resolving]
  - Generalised oedema [Recovering/Resolving]
  - Condition aggravated [Recovering/Resolving]
  - Ejection fraction decreased [Recovering/Resolving]
  - Overdose [Unknown]
  - Drug resistance [Unknown]
  - Proteinuria [Recovering/Resolving]
  - Chronic kidney disease [Recovering/Resolving]
  - Cardiac failure congestive [Recovering/Resolving]
  - Beta 2 microglobulin urine abnormal [Recovering/Resolving]
